FAERS Safety Report 11982028 (Version 1)
Quarter: 2016Q1

REPORT INFORMATION
  Report Type: Spontaneous
  Country: US (occurrence: None)
  Receive Date: 20160129
  Receipt Date: 20160129
  Transmission Date: 20160526
  Serious: No
  Sender: FDA-Public Use
  Company Number: None

PATIENT
  Age: 57 Year
  Sex: Female

DRUGS (1)
  1. TEMOZOLOMIDE 100 TEVA PHARMACEUTICALS USA [Suspect]
     Active Substance: TEMOZOLOMIDE
     Dates: start: 201505

REACTIONS (2)
  - Hepatic enzyme increased [None]
  - Diarrhoea [None]

NARRATIVE: CASE EVENT DATE: 20150601
